FAERS Safety Report 6152374-1 (Version None)
Quarter: 2009Q2

REPORT INFORMATION
  Report Type: 
  Country: None (occurrence: None)
  Receive Date: 20090413
  Receipt Date: 20090409
  Transmission Date: 20091009
  Serious: Yes (Life-Threatening, Other)
  Sender: FDA-Public Use
  Company Number: JP-JNJFOC-20090306994

PATIENT
  Age: 58 Year
  Sex: Male

DRUGS (10)
  1. RISPERDAL [Suspect]
     Indication: DELUSION
     Route: 048
  2. RISPERDAL [Suspect]
     Indication: HALLUCINATION
     Route: 048
  3. RISPERDAL [Suspect]
     Indication: DELIRIUM
     Route: 048
  4. INSULIN ASPART [Suspect]
     Dosage: 6-0-4-0
     Route: 058
  5. INSULIN ASPART [Suspect]
     Indication: DIABETES MELLITUS
     Dosage: 10-0-4-0
     Route: 058
  6. ROHYPNOL [Concomitant]
     Route: 048
  7. FOLIAMIN [Concomitant]
     Route: 048
  8. SHIKICHOL [Concomitant]
     Route: 048
  9. METHYCOOL [Concomitant]
     Route: 048
  10. LANSOPRAZOLE [Concomitant]
     Route: 048

REACTIONS (3)
  - BLOOD GLUCOSE FLUCTUATION [None]
  - HYPOGLYCAEMIA [None]
  - LOSS OF CONSCIOUSNESS [None]
